FAERS Safety Report 14392298 (Version 1)
Quarter: 2018Q1

REPORT INFORMATION
  Report Type: Spontaneous
  Country: US (occurrence: US)
  Receive Date: 20180116
  Receipt Date: 20180116
  Transmission Date: 20180509
  Serious: Yes (Other)
  Sender: FDA-Public Use
  Company Number: US-PFIZER INC-2018016396

PATIENT
  Age: 33 Year
  Sex: Female

DRUGS (3)
  1. EFFEXOR XR [Suspect]
     Active Substance: VENLAFAXINE HYDROCHLORIDE
     Indication: PSYCHOTIC DISORDER
     Dosage: 225 MG, 1X/DAY
  2. EFFEXOR XR [Suspect]
     Active Substance: VENLAFAXINE HYDROCHLORIDE
     Indication: DEPRESSION
     Dosage: 75 MG, 1X/DAY
     Route: 048
     Dates: start: 2017
  3. AMLODIPINE [Concomitant]
     Active Substance: AMLODIPINE BESYLATE
     Indication: HYPERTENSION
     Dosage: 10 MG, 1X/DAY

REACTIONS (10)
  - Muscle spasms [Unknown]
  - Disease recurrence [Not Recovered/Not Resolved]
  - Haemorrhage [Unknown]
  - Headache [Unknown]
  - Drug withdrawal syndrome [Unknown]
  - Psychotic disorder [Not Recovered/Not Resolved]
  - Back pain [Unknown]
  - Disorientation [Unknown]
  - Eye movement disorder [Unknown]
  - Abdominal pain upper [Unknown]

NARRATIVE: CASE EVENT DATE: 2017
